FAERS Safety Report 8394105 (Version 2)
Quarter: 2012Q4

REPORT INFORMATION
  Report Type: 
  Country: NL (occurrence: NL)
  Receive Date: 20120207
  Receipt Date: 20121031
  Transmission Date: 20130627
  Serious: Yes (Death, Hospitalization, Disabling)
  Sender: FDA-Public Use
  Company Number: PHHY2012NL008267

PATIENT
  Age: 73 None
  Sex: Male

DRUGS (10)
  1. ZOMETA [Suspect]
     Indication: PROSTATE CANCER METASTATIC
     Dosage: 4 mg/100 ml, per 28 days
     Route: 042
     Dates: start: 20101103
  2. ZOMETA [Suspect]
     Dosage: 4 mg/100 ml, per 28 days
     Route: 042
     Dates: start: 20120102
  3. ZOMETA [Suspect]
     Dosage: 4 mg/100 ml, per 28 days
     Route: 042
     Dates: start: 20120130
  4. ZOMETA [Suspect]
     Dosage: 4 mg/100 ml, per 28 days
     Route: 042
     Dates: start: 20120521
  5. ZOMETA [Suspect]
     Dosage: 4 mg/100 ml, per 28 days
     Route: 042
     Dates: start: 20120813
  6. DEXAMETHASONE [Concomitant]
     Dosage: 2 mg 2x2
  7. MICARDIS [Concomitant]
     Dosage: 40mg 1x1
  8. METOPROLOL [Concomitant]
     Dosage: 100 mg, 1X1
  9. PAMORELIN [Concomitant]
     Dosage: 22.5 mg, 22.5mg once per 6 months
  10. PHYSIOTHERAPY [Concomitant]
     Dosage: UNK

REACTIONS (8)
  - Death [Fatal]
  - Mobility decreased [Not Recovered/Not Resolved]
  - Weight decreased [Not Recovered/Not Resolved]
  - Neoplasm progression [Not Recovered/Not Resolved]
  - Malignant neoplasm progression [Not Recovered/Not Resolved]
  - Metastases to bone [Not Recovered/Not Resolved]
  - Metastases to spine [Not Recovered/Not Resolved]
  - Pain [Recovering/Resolving]
